FAERS Safety Report 6916332-9 (Version None)
Quarter: 2010Q3

REPORT INFORMATION
  Report Type: 
  Country: None (occurrence: None)
  Receive Date: 20100810
  Receipt Date: 20100720
  Transmission Date: 20110219
  Serious: No
  Sender: FDA-Public Use
  Company Number: US-JNJFOC-20100601762

PATIENT
  Sex: Female

DRUGS (4)
  1. SIMPONI [Suspect]
     Indication: ANKYLOSING SPONDYLITIS
     Route: 058
  2. CELEBREX [Concomitant]
  3. PROZAC [Concomitant]
  4. AZULFIDINE [Concomitant]

REACTIONS (8)
  - ALOPECIA [None]
  - HOT FLUSH [None]
  - NEOPLASM [None]
  - PITYRIASIS [None]
  - PRURITUS [None]
  - RASH [None]
  - SYSTEMIC LUPUS ERYTHEMATOSUS RASH [None]
  - THERMAL BURN [None]
